FAERS Safety Report 6146878-5 (Version None)
Quarter: 2009Q2

REPORT INFORMATION
  Report Type: 
  Country: None (occurrence: None)
  Receive Date: 20090406
  Receipt Date: 20090406
  Transmission Date: 20091009
  Serious: No
  Sender: FDA-Public Use
  Company Number: None

PATIENT
  Sex: Female
  Weight: 58.64 kg

DRUGS (14)
  1. NORTRIPTYLINE HCL [Suspect]
     Dosage: 25MG CAPSULE 25 MG QHS ORAL
     Route: 048
     Dates: start: 20081106, end: 20090217
  2. CALCIUM CARBONATE VIT D [Concomitant]
  3. CAPSAICIN CREAM [Concomitant]
  4. ERGOCALCIFEROL [Concomitant]
  5. GLUCOPHAGE [Concomitant]
  6. GLYBURIDE [Concomitant]
  7. KEFLEX [Concomitant]
  8. LIDOCAINE JELLY [Concomitant]
  9. LISINOPRIL [Concomitant]
  10. LOVASTATIN [Concomitant]
  11. MOTRIN [Concomitant]
  12. PERCOCET [Concomitant]
  13. PRILOSEC OTC (OMEPRAZOLE OTC) [Concomitant]
  14. RANITIDINE HCL [Concomitant]

REACTIONS (1)
  - GASTROINTESTINAL DISORDER [None]
